FAERS Safety Report 5424884-3 (Version None)
Quarter: 2007Q3

REPORT INFORMATION
  Report Type: 
  Country: None (occurrence: None)
  Receive Date: 20070824
  Receipt Date: 20070814
  Transmission Date: 20080115
  Serious: Yes (Hospitalization)
  Sender: FDA-Public Use
  Company Number: AU-AVENTIS-200713970EU

PATIENT
  Age: 46 Year

DRUGS (5)
  1. NATRILIX-SR [Suspect]
     Indication: DRUG USE FOR UNKNOWN INDICATION
     Route: 048
     Dates: end: 20060212
  2. RAMIPRIL [Concomitant]
  3. OLANZAPINE [Concomitant]
  4. AMISULPRIDE [Concomitant]
  5. DIAZEPAM [Concomitant]

REACTIONS (4)
  - CONFUSIONAL STATE [None]
  - HYPOKALAEMIA [None]
  - HYPONATRAEMIA [None]
  - POLYDIPSIA [None]
